FAERS Safety Report 23561747 (Version 1)
Quarter: 2024Q1

REPORT INFORMATION
  Report Type: Report from Study
  Country: AU (occurrence: AU)
  Receive Date: 20240225
  Receipt Date: 20240225
  Transmission Date: 20240409
  Serious: Yes (Hospitalization, Other)
  Sender: FDA-Public Use
  Company Number: AU-ABBVIE-5648702

PATIENT
  Sex: Female

DRUGS (12)
  1. CARBIDOPA\LEVODOPA [Suspect]
     Active Substance: CARBIDOPA\LEVODOPA
     Indication: Parkinson^s disease
     Dosage: MORNING DOSE 7.8MLS CONTINUOUS RATE 2.0ML/HR. EXTRA DOSE 0.9MLS, 30 MINUTE LOCKOUT
     Route: 050
     Dates: start: 2016
  2. CARBIDOPA\LEVODOPA [Suspect]
     Active Substance: CARBIDOPA\LEVODOPA
  3. RASAGILINE [Concomitant]
     Active Substance: RASAGILINE\RASAGILINE MESYLATE
     Indication: Product used for unknown indication
     Dosage: 1MG MANE
     Route: 065
  4. CARBIDOPA AND LEVODOPA [Concomitant]
     Active Substance: CARBIDOPA\LEVODOPA
     Indication: Product used for unknown indication
     Dosage: SR 200/50MG NOCTE
     Route: 065
  5. MIRTAZAPINE [Concomitant]
     Active Substance: MIRTAZAPINE
     Indication: Product used for unknown indication
     Dosage: 30MG NOCTE
     Route: 065
  6. CLONAZEPAM-R [Concomitant]
     Indication: Product used for unknown indication
     Dosage: 0.5MG X 3 NOCTE
     Route: 065
  7. QUETIAPINE [Concomitant]
     Active Substance: QUETIAPINE
     Indication: Product used for unknown indication
     Dosage: IR 200MG NOCTE
     Route: 065
  8. RABEPRAZOLE [Concomitant]
     Active Substance: RABEPRAZOLE
     Indication: Product used for unknown indication
     Dosage: 20MG MANE
     Route: 065
  9. AMANTADINE [Concomitant]
     Active Substance: AMANTADINE
     Indication: Product used for unknown indication
     Dosage: 100MG MANE
     Route: 065
  10. DOCUSATE SODIUM\SENNOSIDES A AND B [Concomitant]
     Active Substance: DOCUSATE SODIUM\SENNOSIDES A AND B
     Indication: Product used for unknown indication
     Dosage: 50/8MG X 1 MANE AND 2 NOCTE
     Route: 065
  11. POLYETHYLENE GLYCOLS [Concomitant]
     Active Substance: POLYETHYLENE GLYCOLS
     Indication: Product used for unknown indication
     Dosage: 1 MANE
     Route: 065
  12. DIETARY SUPPLEMENT [Concomitant]
     Active Substance: DIETARY SUPPLEMENT
     Indication: Product used for unknown indication
     Dosage: NG FEED 500ML OVERNIGHT
     Route: 065

REACTIONS (13)
  - Pneumonia [Unknown]
  - Hospitalisation [Unknown]
  - Constipation [Unknown]
  - Delirium [Unknown]
  - Dementia [Unknown]
  - Device occlusion [Unknown]
  - Dysarthria [Unknown]
  - Dysphagia [Unknown]
  - Traumatic intracranial haemorrhage [Unknown]
  - Monoclonal gammopathy [Unknown]
  - Ureterolithiasis [Unknown]
  - Dyskinesia [Unknown]
  - Muscle spasms [Unknown]

NARRATIVE: CASE EVENT DATE: 20220101
